FAERS Safety Report 5323813-0 (Version None)
Quarter: 2007Q2

REPORT INFORMATION
  Report Type: 
  Country: None (occurrence: None)
  Receive Date: 20070514
  Receipt Date: 20070504
  Transmission Date: 20071010
  Serious: Yes (Other)
  Sender: FDA-Public Use
  Company Number: B0466215A

PATIENT
  Sex: Female

DRUGS (3)
  1. PAROXETINE HYDROCHLORIDE [Suspect]
     Indication: DEPRESSION
     Dosage: 20MG PER DAY
     Route: 065
     Dates: start: 19950113
  2. HALF-INDERAL LA [Concomitant]
     Indication: DEPRESSION
     Route: 065
     Dates: start: 19950113
  3. AMITRIPTYLINE HCL [Concomitant]
     Indication: DEPRESSION
     Route: 065
     Dates: start: 20030210

REACTIONS (6)
  - DEPENDENCE [None]
  - DEPRESSED MOOD [None]
  - DRUG WITHDRAWAL SYNDROME [None]
  - OVERDOSE [None]
  - SKIN LACERATION [None]
  - SUICIDAL IDEATION [None]
